FAERS Safety Report 8181299-5 (Version None)
Quarter: 2012Q1

REPORT INFORMATION
  Report Type: 
  Country: None (occurrence: None)
  Receive Date: 20120302
  Receipt Date: 20120223
  Transmission Date: 20120608
  Serious: Yes (Hospitalization)
  Sender: FDA-Public Use
  Company Number: US-BAYER-2012-001854

PATIENT
  Age: 38 Year
  Sex: Female
  Weight: 108.84 kg

DRUGS (9)
  1. ZYRTEC [Concomitant]
     Dosage: 10 MG, UNK
     Dates: start: 20060121
  2. GUAIFENESIN PSE [Concomitant]
     Dosage: UNK
     Dates: start: 20051231
  3. YASMIN [Suspect]
     Indication: PREMENSTRUAL SYNDROME
     Dosage: UNK
     Dates: start: 20041001, end: 20060220
  4. MOBIC [Concomitant]
     Dosage: 7.5 MG, UNK
     Dates: start: 20061209
  5. FLUCONAZOLE [Concomitant]
     Dosage: 150 MG, UNK
     Dates: start: 20051212
  6. STRATTERA [Concomitant]
     Dosage: 25 MG, UNK
     Dates: start: 20060129
  7. SINGULAIR [Concomitant]
     Dosage: 10 MG, UNK
     Dates: start: 20060121
  8. DIAMOX SRC [Concomitant]
     Dosage: 500 MG, UNK
     Dates: start: 20060115
  9. ROXICET [Concomitant]
     Dosage: 325 MG, UNK
     Dates: start: 20051209

REACTIONS (6)
  - PAIN [None]
  - DEEP VEIN THROMBOSIS [None]
  - CHOLELITHIASIS [None]
  - PULMONARY EMBOLISM [None]
  - PERONEAL NERVE PALSY [None]
  - GAIT DISTURBANCE [None]
